FAERS Safety Report 6308266-8 (Version None)
Quarter: 2009Q3

REPORT INFORMATION
  Report Type: 
  Country: None (occurrence: None)
  Receive Date: 20090810
  Receipt Date: 20090727
  Transmission Date: 20100115
  Serious: Yes (Death, Hospitalization, Other)
  Sender: FDA-Public Use
  Company Number: 2007-00376

PATIENT
  Age: 45 Year
  Sex: Female
  Weight: 68.2 kg

DRUGS (6)
  1. VELCADE [Suspect]
     Indication: LUNG NEOPLASM MALIGNANT
  2. CARBOPLATIN [Suspect]
     Indication: LUNG NEOPLASM MALIGNANT
     Dosage: 2.00
     Dates: start: 20061031, end: 20061205
  3. TAXOL    (PACLITAXEL)           SOLUTION (EXCEPT SYRUP) [Suspect]
     Indication: LUNG NEOPLASM MALIGNANT
     Dosage: 50.00 MG/M2
     Dates: start: 20061031, end: 20061205
  4. WELLBUTRIN SR [Concomitant]
  5. COMPAZINE [Concomitant]
  6. PERCOCET [Concomitant]

REACTIONS (2)
  - ACUTE RESPIRATORY DISTRESS SYNDROME [None]
  - PNEUMONITIS [None]
